FAERS Safety Report 16664303 (Version 1)
Quarter: 2019Q3

REPORT INFORMATION
  Report Type: Other
  Country: CN (occurrence: CN)
  Receive Date: 20190802
  Receipt Date: 20190802
  Transmission Date: 20191004
  Serious: Yes (Other)
  Sender: FDA-Public Use
  Company Number: CN-GE HEALTHCARE LIFE SCIENCES-2019CSU003859

PATIENT

DRUGS (3)
  1. OMNIPAQUE [Suspect]
     Active Substance: IOHEXOL
     Indication: PERIPHERAL ISCHAEMIA
  2. OMNIPAQUE [Suspect]
     Active Substance: IOHEXOL
     Indication: ANGIOGRAM
  3. OMNIPAQUE [Suspect]
     Active Substance: IOHEXOL
     Indication: COMPUTERISED TOMOGRAM
     Dosage: 100 ML, SINGLE
     Route: 042
     Dates: start: 20190630, end: 20190630

REACTIONS (5)
  - Chest discomfort [Recovering/Resolving]
  - Renal impairment [Not Recovered/Not Resolved]
  - Generalised oedema [Recovering/Resolving]
  - Oliguria [Unknown]
  - Posture abnormal [Recovering/Resolving]

NARRATIVE: CASE EVENT DATE: 20190709
